FAERS Safety Report 19896024 (Version 1)
Quarter: 2021Q3

REPORT INFORMATION
  Report Type: Report from Study
  Country: US (occurrence: US)
  Receive Date: 20210929
  Receipt Date: 20210929
  Transmission Date: 20211014
  Serious: Yes (Other)
  Sender: FDA-Public Use
  Company Number: US-MYLANLABS-2021M1035183

PATIENT
  Age: 33 Year
  Sex: Female
  Weight: 90.7 kg

DRUGS (2)
  1. CLOZAPINE. [Suspect]
     Active Substance: CLOZAPINE
     Indication: PRODUCT USED FOR UNKNOWN INDICATION
     Dosage: 350 MILLIGRAM
  2. COGENTIN [Concomitant]
     Active Substance: BENZTROPINE MESYLATE
     Dosage: UNK

REACTIONS (5)
  - Slow speech [Not Recovered/Not Resolved]
  - Dizziness [Not Recovered/Not Resolved]
  - Imprisonment [Unknown]
  - Eye disorder [Not Recovered/Not Resolved]
  - Gaze palsy [Not Recovered/Not Resolved]

NARRATIVE: CASE EVENT DATE: 20210615
